FAERS Safety Report 5614534-5 (Version None)
Quarter: 2008Q1

REPORT INFORMATION
  Report Type: 
  Country: None (occurrence: None)
  Receive Date: 20080205
  Receipt Date: 20080110
  Transmission Date: 20080703
  Serious: No
  Sender: FDA-Public Use
  Company Number: US-BOEHRINGER INGELHEIM GMBH, GERMANY-2007-BP-26337BP

PATIENT
  Sex: Male

DRUGS (5)
  1. FLOMAX [Suspect]
     Indication: BENIGN PROSTATIC HYPERPLASIA
     Route: 048
     Dates: start: 20070327, end: 20071210
  2. FLOMAX [Suspect]
     Indication: POLLAKIURIA
  3. LIPITOR [Concomitant]
  4. PREVACID [Concomitant]
  5. IBUPROFEN [Concomitant]

REACTIONS (3)
  - DROOLING [None]
  - NASAL CONGESTION [None]
  - ORAL INFECTION [None]
